FAERS Safety Report 7899447 (Version 3)
Quarter: 2012Q4

REPORT INFORMATION
  Report Type: 
  Country: US (occurrence: US)
  Receive Date: 20110414
  Receipt Date: 20121031
  Transmission Date: 20130627
  Serious: Yes (Death, Other)
  Sender: FDA-Public Use
  Company Number: US-ASTRAZENECA-2011SE02739

PATIENT
  Age: 88 Year
  Sex: Female

DRUGS (1)
  1. SYMBICORT PMDI [Suspect]
     Indication: ASTHMA
     Dosage: 160/4.5 MCG, 2 puffs, two times a day
     Route: 055

REACTIONS (11)
  - Multi-organ failure [Fatal]
  - Sepsis [Fatal]
  - Spinal fracture [Unknown]
  - Fall [Unknown]
  - Dyspnoea [Unknown]
  - Circumstance or information capable of leading to medication error [Unknown]
  - Wrong technique in drug usage process [Unknown]
  - Drug dose omission [Unknown]
  - Dementia Alzheimer^s type [Unknown]
  - Diabetes mellitus [Unknown]
  - Bone disorder [Unknown]
